FAERS Safety Report 5679946-2 (Version None)
Quarter: 2008Q1

REPORT INFORMATION
  Report Type: 
  Country: None (occurrence: None)
  Receive Date: 20080324
  Receipt Date: 20080311
  Transmission Date: 20080703
  Serious: Yes (Hospitalization)
  Sender: FDA-Public Use
  Company Number: GXKR2008DE02555

PATIENT
  Age: 23 Year
  Sex: Male

DRUGS (1)
  1. AZITHROMYCIN SANDOZ (NGX) (AZITHROMYCIN) FILM-COATED TABLET [Suspect]
     Dosage: 250 MG, ORAL
     Route: 048
     Dates: start: 20080114, end: 20080116

REACTIONS (1)
  - FACIAL PALSY [None]
